FAERS Safety Report 9894641 (Version 2)
Quarter: 2014Q3

REPORT INFORMATION
  Report Type: Spontaneous
  Country: US (occurrence: US)
  Receive Date: 20140213
  Receipt Date: 20140808
  Transmission Date: 20150326
  Serious: Yes (Hospitalization, Other)
  Sender: FDA-Public Use
  Company Number: US-009507513-1402USA005831

PATIENT
  Sex: Female
  Weight: 88.89 kg

DRUGS (1)
  1. NUVARING [Suspect]
     Active Substance: ETHINYL ESTRADIOL\ETONOGESTREL
     Indication: CONTRACEPTION
     Dosage: UNK
     Dates: start: 201010, end: 20101129

REACTIONS (7)
  - Pulmonary embolism [Unknown]
  - Carpal tunnel syndrome [Unknown]
  - Ligament sprain [Unknown]
  - Myopia [Unknown]
  - Punctate keratitis [Unknown]
  - Back pain [Unknown]
  - Temporomandibular joint syndrome [Unknown]

NARRATIVE: CASE EVENT DATE: 201011
